FAERS Safety Report 7851504-0 (Version None)
Quarter: 2011Q4

REPORT INFORMATION
  Report Type: 
  Country: None (occurrence: None)
  Receive Date: 20111026
  Receipt Date: 20111021
  Transmission Date: 20120403
  Serious: Yes (Hospitalization)
  Sender: FDA-Public Use
  Company Number: JP-B.I. PHARMACEUTICALS,INC./RIDGEFIELD-2011-BP-24648NB

PATIENT
  Age: 79 Year
  Sex: Male

DRUGS (11)
  1. PRADAXA [Suspect]
     Indication: ATRIAL FIBRILLATION
     Dosage: 220 MG
     Route: 048
     Dates: start: 20110422, end: 20111008
  2. HARNAL D [Concomitant]
     Route: 065
     Dates: end: 20111007
  3. ETIZOLAM [Concomitant]
     Route: 048
  4. OLMESARTAN MEDOXOMIL [Concomitant]
     Route: 048
  5. METFORMIN HCL [Concomitant]
     Route: 048
     Dates: end: 20111007
  6. FAMOTIDINE D [Concomitant]
     Route: 065
  7. PURSENNID [Concomitant]
     Route: 065
  8. MAGNESIUM OXIDE [Concomitant]
     Route: 065
  9. NESINA [Suspect]
     Indication: DIABETES MELLITUS
     Route: 048
     Dates: start: 20110422, end: 20111007
  10. SM [Concomitant]
     Route: 065
  11. ALLOPURINOL [Concomitant]
     Route: 048

REACTIONS (2)
  - HAEMOPTYSIS [None]
  - INTERSTITIAL LUNG DISEASE [None]
